FAERS Safety Report 17664794 (Version 1)
Quarter: 2020Q2

REPORT INFORMATION
  Report Type: Report from Study
  Country: US (occurrence: US)
  Receive Date: 20200414
  Receipt Date: 20200414
  Transmission Date: 20200713
  Serious: No
  Sender: FDA-Public Use
  Company Number: US-BIOVITRUM-2019US1645

PATIENT
  Age: 33 Year
  Sex: Female

DRUGS (1)
  1. KINERET [Suspect]
     Active Substance: ANAKINRA
     Indication: STILL^S DISEASE
     Route: 058
     Dates: start: 20190509

REACTIONS (7)
  - Off label use [Unknown]
  - Liquid product physical issue [Unknown]
  - Injection site pain [Unknown]
  - Injection site erythema [Unknown]
  - Injection site swelling [Unknown]
  - Injection site reaction [Unknown]
  - Lack of injection site rotation [Recovered/Resolved]

NARRATIVE: CASE EVENT DATE: 20190509
